FAERS Safety Report 4442672-1 (Version None)
Quarter: 2004Q3

REPORT INFORMATION
  Report Type: 
  Country: None (occurrence: None)
  Receive Date: 20040903
  Receipt Date: 20040617
  Transmission Date: 20050211
  Serious: Yes (Other)
  Sender: FDA-Public Use
  Company Number: 2004UW12802

PATIENT
  Sex: Female

DRUGS (3)
  1. CRESTOR [Suspect]
     Dosage: 5 MG QD PO
     Route: 048
  2. ELAVIL [Concomitant]
  3. ORAL CONTRACEPTIVE [Concomitant]

REACTIONS (5)
  - BLOOD CREATINE PHOSPHOKINASE INCREASED [None]
  - FATIGUE [None]
  - GASTRIC DISORDER [None]
  - MYALGIA [None]
  - NAUSEA [None]
